FAERS Safety Report 10768496 (Version 3)
Quarter: 2015Q2

REPORT INFORMATION
  Report Type: Spontaneous
  Country: MX (occurrence: MX)
  Receive Date: 20150206
  Receipt Date: 20150608
  Transmission Date: 20150821
  Serious: Yes (Other)
  Sender: FDA-Public Use
  Company Number: MX-ROCHE-1532141

PATIENT
  Age: 58 Year
  Sex: Male
  Weight: 68 kg

DRUGS (1)
  1. AVASTIN [Suspect]
     Active Substance: BEVACIZUMAB
     Indication: DIABETIC RETINOPATHY
     Dosage: CYCLICAL
     Route: 050

REACTIONS (3)
  - Retinitis [Recovering/Resolving]
  - Suspected counterfeit product [Unknown]
  - Off label use [Unknown]

NARRATIVE: CASE EVENT DATE: 201411
